FAERS Safety Report 8926188 (Version 2)
Quarter: 2013Q1

REPORT INFORMATION
  Report Type: Spontaneous
  Country: GB (occurrence: GB)
  Receive Date: 20121126
  Receipt Date: 20130213
  Transmission Date: 20140127
  Serious: Yes (Other)
  Sender: FDA-Public Use
  Company Number: GB-ASTRAZENECA-2012SE86267

PATIENT
  Sex: Female

DRUGS (5)
  1. SYMBICORT [Suspect]
     Indication: ASTHMA
     Dosage: FREQUENCY UNKNOWN
     Route: 055
  2. NEO-NACLEX-K [Suspect]
     Indication: HYPERTENSION
     Route: 048
     Dates: start: 2005, end: 201202
  3. BUSCOPAN [Concomitant]
     Indication: DIARRHOEA
     Dates: end: 20120218
  4. IMODIUM [Concomitant]
     Indication: DIARRHOEA
  5. CARIBAN [Concomitant]
     Indication: DIARRHOEA
     Dates: end: 20120218

REACTIONS (2)
  - Exposure during pregnancy [Unknown]
  - Abortion spontaneous [Unknown]
